FAERS Safety Report 25808925 (Version 1)
Quarter: 2025Q3

REPORT INFORMATION
  Report Type: Report from Study
  Country: EU (occurrence: EU)
  Receive Date: 20250916
  Receipt Date: 20250916
  Transmission Date: 20251020
  Serious: Yes (Life-Threatening, Other)
  Sender: MYLAN
  Company Number: EU-JNJFOC-20250903060

PATIENT
  Age: 79 Year
  Sex: Male

DRUGS (3)
  1. DEXAMETHASONE [Suspect]
     Active Substance: DEXAMETHASONE
     Indication: Plasma cell myeloma
  2. BORTEZOMIB [Suspect]
     Active Substance: BORTEZOMIB
     Indication: Plasma cell myeloma
  3. BENDAMUSTINE [Suspect]
     Active Substance: BENDAMUSTINE
     Indication: Plasma cell myeloma
     Dosage: 80 MILLIGRAM/SQ. METER, QW, LINE NUMBER 4, 80 MG/M2/DOSE 1 DOSE/WEEK 2 WEEKS/CYCLE
     Dates: end: 20220425

REACTIONS (3)
  - Haematotoxicity [Unknown]
  - Neuropathy peripheral [Unknown]
  - Intentional product use issue [Unknown]
